FAERS Safety Report 4658789-2 (Version None)
Quarter: 2005Q2

REPORT INFORMATION
  Report Type: 
  Country: None (occurrence: None)
  Receive Date: 20050509
  Receipt Date: 20050425
  Transmission Date: 20051028
  Serious: Yes (Other)
  Sender: FDA-Public Use
  Company Number: 2005065893

PATIENT
  Age: 15 Year
  Sex: Male

DRUGS (2)
  1. GENOTROPIN [Suspect]
     Indication: HYPOPITUITARISM
     Dosage: 1.3 MG (DAILY)
     Dates: start: 19961011
  2. DIPYRIDAMOLE [Concomitant]

REACTIONS (1)
  - GLOMERULONEPHRITIS PROLIFERATIVE [None]
